FAERS Safety Report 7551684-0 (Version None)
Quarter: 2011Q2

REPORT INFORMATION
  Report Type: 
  Country: None (occurrence: None)
  Receive Date: 20110616
  Receipt Date: 20110604
  Transmission Date: 20111010
  Serious: Yes (Death)
  Sender: FDA-Public Use
  Company Number: KR-EISAI INC-E2020-09263-SPO-KR

PATIENT
  Age: 80 Year
  Sex: Male
  Weight: 42 kg

DRUGS (13)
  1. PSEUDOEPHEDRINE HCL [Concomitant]
     Indication: RESPIRATORY TRACT CONGESTION
     Dosage: 30 MG UNKNOWN
     Route: 048
     Dates: start: 20100921
  2. ESCITALOPRAM [Concomitant]
     Indication: DEPRESSION
     Dosage: 5 MG UNKNOWN
     Route: 048
     Dates: start: 20101008
  3. PRAMIPEXOLE DIHYDROCHLORIDE [Concomitant]
     Indication: PARKINSON'S DISEASE
     Dosage: 0.425 MG UNKNOWN
     Route: 048
     Dates: start: 20090101
  4. BENSERAZIDE [Concomitant]
     Indication: PARKINSON'S DISEASE
     Dosage: 125 MG UNKNOWN
     Route: 048
     Dates: start: 20090101
  5. ARICEPT [Suspect]
     Route: 048
     Dates: start: 20101225, end: 20110216
  6. MAGNESIUM SULFATE [Concomitant]
     Indication: CONSTIPATION
     Dosage: 1000 MG UNKNOWN
     Route: 048
     Dates: start: 20100921
  7. ZOLPIDEM [Concomitant]
     Indication: SLEEP DISORDER
     Dosage: 5 MG UNKNOWN
     Route: 048
     Dates: start: 20100921
  8. RANITIDINE [Concomitant]
     Indication: GASTRITIS
     Dosage: 150 MG UNKNOWN
     Route: 048
     Dates: start: 20100921
  9. NIFEDIPINE [Concomitant]
     Indication: BLOOD PRESSURE
     Dosage: 10 MG UNKNOWN
     Route: 048
     Dates: start: 20090101
  10. THEOPHYLLINE [Concomitant]
     Indication: ASTHMA
     Dosage: 200 MG UNKNOWN
     Route: 048
     Dates: start: 20100921
  11. CLONAZEPAM [Concomitant]
     Indication: MOVEMENT DISORDER
     Dosage: 0.5 MG UNKNOWN
     Route: 048
     Dates: start: 20100921
  12. PROPRANOLOL [Concomitant]
     Indication: TREMOR
     Dosage: 60 MG UNKNOWN
     Route: 048
     Dates: start: 20090101
  13. ERDOSTEINE [Concomitant]
     Dosage: 600 MG UNKNOWN
     Route: 048
     Dates: start: 20100921

REACTIONS (1)
  - PNEUMONIA [None]
